FAERS Safety Report 4874442-4 (Version None)
Quarter: 2006Q1

REPORT INFORMATION
  Report Type: 
  Country: None (occurrence: None)
  Receive Date: 20060104
  Receipt Date: 20050426
  Transmission Date: 20060701
  Serious: Yes (Other)
  Sender: FDA-Public Use
  Company Number: DSFSE020050426MD01

PATIENT

DRUGS (8)
  1. DERMA-SMOOTHE/FS [Suspect]
     Indication: PSORIASIS
     Dosage: QD, TOPICAL
     Route: 061
  2. HYDROCORTISONE CREAM [Concomitant]
  3. DOVE SOAP [Concomitant]
  4. ASPIRIN [Concomitant]
  5. GLUCOSAGE [Concomitant]
  6. LIPITOR [Concomitant]
  7. CENTRUM [Concomitant]
  8. NEXIUM [Concomitant]

REACTIONS (1)
  - BURNING SENSATION [None]
